FAERS Safety Report 8506347-1 (Version None)
Quarter: 2012Q3

REPORT INFORMATION
  Report Type: 
  Country: None (occurrence: None)
  Receive Date: 20120712
  Receipt Date: 20120705
  Transmission Date: 20120928
  Serious: Yes (Death, Hospitalization)
  Sender: FDA-Public Use
  Company Number: GB-CELGENEUS-167-50794-12030224

PATIENT

DRUGS (1)
  1. VIDAZA [Suspect]
     Route: 065

REACTIONS (1)
  - NEUTROPENIC SEPSIS [None]
